FAERS Safety Report 20040516 (Version 1)
Quarter: 2021Q4

REPORT INFORMATION
  Report Type: Spontaneous
  Country: US (occurrence: None)
  Receive Date: 20211107
  Receipt Date: 20211107
  Transmission Date: 20220303
  Serious: Yes (Life-Threatening, Hospitalization)
  Sender: FDA-Public Use
  Company Number: None

PATIENT
  Age: 62 Year
  Sex: Male

DRUGS (1)
  1. AMILORIDE HYDROCHLORIDE [Suspect]
     Active Substance: AMILORIDE HYDROCHLORIDE
     Indication: Renal transplant
     Dosage: FREQUENCY : DAILY;?
     Route: 048
     Dates: start: 20210323, end: 20210330

REACTIONS (3)
  - Palpitations [None]
  - Hyperkalaemia [None]
  - Arrhythmia [None]

NARRATIVE: CASE EVENT DATE: 20210401
